FAERS Safety Report 4375699-9 (Version None)
Quarter: 2004Q2

REPORT INFORMATION
  Report Type: 
  Country: None (occurrence: None)
  Receive Date: 20040608
  Receipt Date: 20030915
  Transmission Date: 20050107
  Serious: Yes (Life-Threatening, Other)
  Sender: FDA-Public Use
  Company Number: 200313299BCC

PATIENT
  Age: 46 Year
  Sex: Female
  Weight: 53.0709 kg

DRUGS (1)
  1. ALEVE [Suspect]
     Indication: HEADACHE
     Dosage: 440 MG, ONCE, ORAL
     Route: 048
     Dates: start: 20030906

REACTIONS (14)
  - AGEUSIA [None]
  - ANAPHYLACTIC SHOCK [None]
  - ANOREXIA [None]
  - CYANOSIS [None]
  - DEPRESSED LEVEL OF CONSCIOUSNESS [None]
  - DYSPNOEA [None]
  - OBSTRUCTIVE AIRWAYS DISORDER [None]
  - PRURITUS [None]
  - PRURITUS GENERALISED [None]
  - SKIN BURNING SENSATION [None]
  - SWELLING [None]
  - SWELLING FACE [None]
  - TREMOR [None]
  - WEIGHT DECREASED [None]
